FAERS Safety Report 4886281-9 (Version None)
Quarter: 2006Q1

REPORT INFORMATION
  Report Type: 
  Country: None (occurrence: None)
  Receive Date: 20060118
  Receipt Date: 20060104
  Transmission Date: 20060701
  Serious: Yes (Other)
  Sender: FDA-Public Use
  Company Number: USA0509108538

PATIENT
  Age: 69 Year
  Sex: Female
  Weight: 68 kg

DRUGS (2)
  1. FORTEO [Suspect]
     Indication: OSTEOPOROSIS
     Dosage: 20 UG, DAILY (1/D)
     Dates: start: 20041118, end: 20050718
  2. FORTEO [Concomitant]

REACTIONS (3)
  - PANCREATIC CYST [None]
  - PHARMACEUTICAL PRODUCT COMPLAINT [None]
  - TUMOUR MARKER INCREASED [None]
